FAERS Safety Report 13258040 (Version 1)
Quarter: 2017Q1

REPORT INFORMATION
  Report Type: Spontaneous
  Country: US (occurrence: US)
  Receive Date: 20170221
  Receipt Date: 20170221
  Transmission Date: 20170428
  Serious: Yes (Other)
  Sender: FDA-Public Use
  Company Number: US-BAUSCH-BL-2017-004465

PATIENT
  Age: 69 Year
  Sex: Female
  Weight: 54.48 kg

DRUGS (3)
  1. XIFAXAN [Suspect]
     Active Substance: RIFAXIMIN
     Indication: GASTROINTESTINAL DISORDER
     Route: 048
     Dates: start: 2016
  2. XIFAXAN [Suspect]
     Active Substance: RIFAXIMIN
     Indication: LIVER DISORDER
     Route: 048
     Dates: start: 201702
  3. OCALIVA [Suspect]
     Active Substance: OBETICHOLIC ACID
     Indication: LIVER DISORDER
     Dosage: MORNING
     Route: 048
     Dates: start: 2016

REACTIONS (3)
  - Treatment noncompliance [Unknown]
  - Haemorrhoidal haemorrhage [Unknown]
  - Injection site haemorrhage [Recovered/Resolved]

NARRATIVE: CASE EVENT DATE: 201702
